FAERS Safety Report 9506035 (Version 9)
Quarter: 2014Q1

REPORT INFORMATION
  Report Type: Spontaneous
  Country: US (occurrence: None)
  Receive Date: 20130206
  Receipt Date: 20130206
  Transmission Date: 20141002
  Serious: Yes (Hospitalization)
  Sender: FDA-Public Use
  Company Number: DAV-AE-MTX-12-02

PATIENT
  Age: 50 Year
  Sex: Male
  Weight: 87 kg

DRUGS (8)
  1. METHOTREXATE (METHOTREXATE) OPEN LABEL [Suspect]
     Indication: RHEUMATOID ARTHRITIS
     Route: 048
     Dates: start: 20111014, end: 20111207
  2. HUMIRA (ADALIMUMAB) OPEN LABEL [Suspect]
     Indication: RHEUMATOID ARTHRITIS
     Dosage: UNK (40 MG, 1 IN 2 WK), SC
     Route: 058
     Dates: start: 20111014, end: 20111202
  3. OXAPROZIN [Concomitant]
  4. PANADEINE CO (CODEINE, PHOSPHATE AND PARACETAMOL) [Concomitant]
  5. NAPROXEN [Concomitant]
  6. TADALAFIL [Concomitant]
  7. FOLIC ACID [Concomitant]
  8. CYCLOBENZAPRINE (CYCLOBENZAPRINE) [Concomitant]

REACTIONS (3)
  - Infection [None]
  - Sepsis [None]
  - Urinary tract infection [None]
